FAERS Safety Report 5902989-8 (Version None)
Quarter: 2008Q3

REPORT INFORMATION
  Report Type: 
  Country: None (occurrence: None)
  Receive Date: 20080926
  Receipt Date: 20080918
  Transmission Date: 20090109
  Serious: Yes (Hospitalization)
  Sender: FDA-Public Use
  Company Number: TOR-2008-0022

PATIENT
  Age: 63 Year
  Sex: Female

DRUGS (6)
  1. FARESTON [Suspect]
     Indication: BREAST CANCER
     Dosage: 40 MG, ORAL
     Route: 048
     Dates: start: 20080213, end: 20080527
  2. TOLTERODINE TARTRATE [Concomitant]
  3. VESICAR (SOLIFENACIN) [Concomitant]
  4. MAGLAX [Concomitant]
  5. VOLTAREN [Concomitant]
  6. SELBEX [Concomitant]

REACTIONS (1)
  - MYELODYSPLASTIC SYNDROME [None]
